FAERS Safety Report 14781136 (Version 3)
Quarter: 2018Q2

REPORT INFORMATION
  Report Type: Report from Study
  Country: None (occurrence: US)
  Receive Date: 20180419
  Receipt Date: 20180427
  Transmission Date: 20180711
  Serious: Yes (Hospitalization)
  Sender: FDA-Public Use
  Company Number: US-VIFOR (INTERNATIONAL) INC.-VIT-2018-03250

PATIENT
  Sex: Male

DRUGS (1)
  1. VELTASSA [Suspect]
     Active Substance: PATIROMER
     Indication: PRODUCT USED FOR UNKNOWN INDICATION
     Dates: start: 20180221

REACTIONS (8)
  - Blood potassium increased [Recovered/Resolved]
  - Hepatitis C [Unknown]
  - Renal disorder [Recovering/Resolving]
  - Unevaluable event [Unknown]
  - Blood pressure increased [Recovered/Resolved]
  - Renal impairment [Recovered/Resolved]
  - Apparent death [Recovered/Resolved]
  - Bipolar disorder [Recovered/Resolved]

NARRATIVE: CASE EVENT DATE: 2018
